FAERS Safety Report 4359364-X (Version None)
Quarter: 2004Q2

REPORT INFORMATION
  Report Type: 
  Country: None (occurrence: None)
  Receive Date: 20040518
  Receipt Date: 20040506
  Transmission Date: 20050107
  Serious: Yes (Hospitalization)
  Sender: FDA-Public Use
  Company Number: ES-JNJFOC-20040501177

PATIENT
  Age: 38 Year
  Sex: Male
  Weight: 90 kg

DRUGS (4)
  1. REMICADE [Suspect]
     Indication: CROHN'S DISEASE
     Route: 042
  2. IMUREL [Concomitant]
  3. CORTICOSTEROID NOS [Concomitant]
  4. ISONIAZID [Concomitant]

REACTIONS (4)
  - GASTROENTERITIS [None]
  - HYPOVOLAEMIA [None]
  - PYREXIA [None]
  - SEPTIC SHOCK [None]
